FAERS Safety Report 19998172 (Version 4)
Quarter: 2021Q4

REPORT INFORMATION
  Report Type: Report from Study
  Country: BR (occurrence: BR)
  Receive Date: 20211026
  Receipt Date: 20211217
  Transmission Date: 20220304
  Serious: Yes (Hospitalization)
  Sender: FDA-Public Use
  Company Number: BR-NOVARTISPH-NVSC2021BR174811

PATIENT
  Age: 34 Year
  Sex: Female
  Weight: 57 kg

DRUGS (7)
  1. CRIZANLIZUMAB [Suspect]
     Active Substance: CRIZANLIZUMAB
     Indication: Vascular disorder prophylaxis
     Dosage: 285 MG, QMO
     Route: 042
     Dates: start: 20201204
  2. CRIZANLIZUMAB [Suspect]
     Active Substance: CRIZANLIZUMAB
     Dosage: 285 MG
     Route: 065
     Dates: start: 20210927
  3. GABAPENTIN [Concomitant]
     Active Substance: GABAPENTIN
     Indication: Neuralgia
     Dosage: 1500 MG, QD
     Route: 048
     Dates: start: 202005
  4. ESCITALOPRAM [Concomitant]
     Active Substance: ESCITALOPRAM OXALATE
     Indication: Depression
     Dosage: 50 MG, QD
     Route: 048
     Dates: start: 202010
  5. HYDROXYUREA [Concomitant]
     Active Substance: HYDROXYUREA
     Indication: Prophylaxis
     Dosage: 1500 MG, QD
     Route: 048
     Dates: start: 2014
  6. FOLIC ACID [Concomitant]
     Active Substance: FOLIC ACID
     Indication: Haemolysis
     Dosage: 5 MG, QW
     Route: 048
     Dates: start: 1999
  7. CODEINE [Concomitant]
     Active Substance: CODEINE
     Indication: Product used for unknown indication
     Dosage: UNK
     Route: 065

REACTIONS (6)
  - Pain in extremity [Recovered/Resolved]
  - Back pain [Recovered/Resolved]
  - Infusion related reaction [Recovered/Resolved]
  - Pain [Recovered/Resolved]
  - Back pain [Recovered/Resolved]
  - Pain in extremity [Recovered/Resolved]

NARRATIVE: CASE EVENT DATE: 20210614
